FAERS Safety Report 5812892-X (Version None)
Quarter: 2008Q3

REPORT INFORMATION
  Report Type: 
  Country: None (occurrence: None)
  Receive Date: 20080717
  Receipt Date: 20070620
  Transmission Date: 20090109
  Serious: No
  Sender: FDA-Public Use
  Company Number: A0658135A

PATIENT
  Age: 34 Year

DRUGS (1)
  1. NICORETTE (MINT) [Suspect]
     Route: 002
     Dates: start: 20070617

REACTIONS (1)
  - HICCUPS [None]
